FAERS Safety Report 21699797 (Version 2)
Quarter: 2022Q4

REPORT INFORMATION
  Report Type: Report from Study
  Country: SG (occurrence: SG)
  Receive Date: 20221208
  Receipt Date: 20221215
  Transmission Date: 20230113
  Serious: Yes (Hospitalization)
  Sender: FDA-Public Use
  Company Number: SG-JNJFOC-20221167093

PATIENT
  Age: 41 Year
  Sex: Female

DRUGS (1)
  1. SIMPONI [Suspect]
     Active Substance: GOLIMUMAB
     Indication: Ankylosing spondylitis
     Dosage: LAST DOSE BEFORE ADMISSION WAS GIVEN 17-JUN-2022.?BI MONTHLY?THERAPY START DATE- 05/NOV/2022
     Route: 058
     Dates: start: 20220617

REACTIONS (3)
  - Neutropenia [Unknown]
  - COVID-19 [Recovered/Resolved]
  - Chest pain [Unknown]

NARRATIVE: CASE EVENT DATE: 20220601
